FAERS Safety Report 5743647-2 (Version None)
Quarter: 2008Q2

REPORT INFORMATION
  Report Type: 
  Country: None (occurrence: None)
  Receive Date: 20080519
  Receipt Date: 20080519
  Transmission Date: 20081010
  Serious: Yes (Death, Hospitalization)
  Sender: FDA-Public Use
  Company Number: None

PATIENT
  Sex: Male
  Weight: 125 kg

DRUGS (3)
  1. CYTARABINE [Suspect]
     Dosage: 16000 MG
     Dates: end: 20080503
  2. ETOPOSIDE [Suspect]
     Dosage: 1092 MG
     Dates: end: 20080503
  3. RITUXIMAB (MOAB C2B8 ANTI CD20, CHIMERIC) [Suspect]
     Dosage: 750 MG
     Dates: end: 20080505

REACTIONS (3)
  - ACIDOSIS [None]
  - CARDIO-RESPIRATORY ARREST [None]
  - SEPTIC SHOCK [None]
